FAERS Safety Report 7267031-8 (Version None)
Quarter: 2011Q1

REPORT INFORMATION
  Report Type: 
  Country: None (occurrence: None)
  Receive Date: 20110120
  Receipt Date: 20110113
  Transmission Date: 20110831
  Serious: Yes (Other)
  Sender: FDA-Public Use
  Company Number: 2011009409

PATIENT
  Age: 28 Year
  Sex: Male
  Weight: 80 kg

DRUGS (6)
  1. SPIRONOLACTONE [Concomitant]
  2. FRAGMIN [Suspect]
     Dosage: SUBCUTANEOUS
     Route: 058
     Dates: start: 20100819, end: 20100819
  3. POLPRAZOL (OMEPRAZOLE) [Concomitant]
  4. DICLOFENAC [Concomitant]
  5. BACLOFEN [Concomitant]
  6. LIDOCAINE HYDROCHLORIDE [Concomitant]

REACTIONS (3)
  - DYSPNOEA [None]
  - DERMATITIS ALLERGIC [None]
  - PRURITUS GENERALISED [None]
